FAERS Safety Report 6464702-8 (Version None)
Quarter: 2009Q4

REPORT INFORMATION
  Report Type: 
  Country: None (occurrence: None)
  Receive Date: 20091201
  Receipt Date: 20091120
  Transmission Date: 20100525
  Serious: Yes (Hospitalization)
  Sender: FDA-Public Use
  Company Number: SE-BRISTOL-MYERS SQUIBB COMPANY-13215314

PATIENT
  Age: 73 Year
  Sex: Male
  Weight: 77 kg

DRUGS (4)
  1. IRBESARTAN [Suspect]
     Indication: HYPERTENSION
     Dosage: INTERRUPTED FOR 2 DAYS
     Dates: start: 20050314, end: 20051016
  2. CLOPIDOGREL BISULFATE [Suspect]
     Indication: PROPHYLAXIS
     Dosage: INTERRUPTED FOR 2 DAYS
     Dates: start: 20050314, end: 20051016
  3. ASPIRIN [Suspect]
     Indication: PROPHYLAXIS
     Dosage: INTERRUPTED FOR 2 DAYS
     Dates: start: 20050314, end: 20051016
  4. ASPIRIN [Concomitant]

REACTIONS (1)
  - GASTROINTESTINAL HAEMORRHAGE [None]
